FAERS Safety Report 4384912-3 (Version None)
Quarter: 2004Q2

REPORT INFORMATION
  Report Type: 
  Country: None (occurrence: None)
  Receive Date: 20040625
  Receipt Date: 20040525
  Transmission Date: 20050107
  Serious: Yes (Hospitalization)
  Sender: FDA-Public Use
  Company Number: ES-ROCHE-368859

PATIENT
  Age: 71 Year
  Sex: Male

DRUGS (4)
  1. CAPECITABINE [Suspect]
     Indication: COLORECTAL CANCER
     Dosage: GIVEN FROM DAY ONE TO DAY 14 OF A THREE WEEK CYCLE.
     Route: 048
     Dates: start: 20040212
  2. CAPECITABINE [Suspect]
     Dosage: LOWERED DOSAGE
     Route: 048
  3. OXALIPLATIN [Suspect]
     Indication: COLORECTAL CANCER
     Route: 042
     Dates: start: 20040212, end: 20040304
  4. OMEPRAZOLE [Concomitant]

REACTIONS (1)
  - PERIPHERAL ISCHAEMIA [None]
